FAERS Safety Report 4297213-9 (Version None)
Quarter: 2004Q1

REPORT INFORMATION
  Report Type: 
  Country: None (occurrence: None)
  Receive Date: 20040213
  Receipt Date: 20040205
  Transmission Date: 20041129
  Serious: Yes (Other)
  Sender: FDA-Public Use
  Company Number: 2004007664

PATIENT
  Age: 66 Year
  Sex: Female
  Weight: 48.5349 kg

DRUGS (5)
  1. ZITHROMAX [Suspect]
     Indication: HEADACHE
     Dosage: DAILY, ORAL
     Route: 048
     Dates: start: 20030101, end: 20040204
  2. LEVOTHYROXINE SODIUM [Concomitant]
  3. FUROSEMIDE [Concomitant]
  4. DIAZEPAM [Concomitant]
  5. MULTIVITAMIN [Concomitant]

REACTIONS (4)
  - INSOMNIA [None]
  - PHARYNGOLARYNGEAL PAIN [None]
  - THROAT TIGHTNESS [None]
  - TINNITUS [None]
